FAERS Safety Report 12382751 (Version 2)
Quarter: 2016Q3

REPORT INFORMATION
  Report Type: Report from Study
  Country: CA (occurrence: CA)
  Receive Date: 20160518
  Receipt Date: 20160708
  Transmission Date: 20161109
  Serious: Yes (Other)
  Sender: FDA-Public Use
  Company Number: CA-TAKEDA-2016TUS006330

PATIENT
  Age: 67 Year
  Sex: Male

DRUGS (8)
  1. PREDNISONE. [Concomitant]
     Active Substance: PREDNISONE
     Dosage: UNK
  2. WARFARIN [Concomitant]
     Active Substance: WARFARIN
     Dosage: UNK
  3. LOPERAMIDE [Concomitant]
     Active Substance: LOPERAMIDE
     Dosage: UNK
  4. VEDOLIZUMAB [Suspect]
     Active Substance: VEDOLIZUMAB
     Indication: COLITIS ULCERATIVE
     Dosage: 300 MG, UNK
     Route: 042
     Dates: start: 20160324
  5. ATORVASTATIN [Concomitant]
     Active Substance: ATORVASTATIN
     Indication: BLOOD CHOLESTEROL INCREASED
     Dosage: UNK
  6. INDAPAMIDE. [Concomitant]
     Active Substance: INDAPAMIDE
     Dosage: UNK
  7. OXYCOCET [Concomitant]
     Active Substance: ACETAMINOPHEN\OXYCODONE HYDROCHLORIDE
  8. PENTASA [Concomitant]
     Active Substance: MESALAMINE

REACTIONS (6)
  - Clumsiness [Unknown]
  - Hypoaesthesia [Recovering/Resolving]
  - Asthenia [Recovering/Resolving]
  - Amnesia [Recovering/Resolving]
  - Fatigue [Unknown]
  - Fatigue [Recovered/Resolved]

NARRATIVE: CASE EVENT DATE: 201603
